FAERS Safety Report 17212685 (Version 1)
Quarter: 2019Q4

REPORT INFORMATION
  Report Type: Spontaneous
  Country: SI (occurrence: SI)
  Receive Date: 20191230
  Receipt Date: 20191230
  Transmission Date: 20200122
  Serious: Yes (Other)
  Sender: FDA-Public Use
  Company Number: NVSC2019SI080256

PATIENT
  Age: 50 Year
  Sex: Male

DRUGS (1)
  1. ADALIMUMAB [Suspect]
     Active Substance: ADALIMUMAB
     Indication: PSORIATIC ARTHROPATHY
     Dosage: 40 MG, BIW
     Route: 065

REACTIONS (3)
  - Erythema migrans [Recovered/Resolved]
  - Lyme disease [Recovered/Resolved]
  - Pruritus [Recovered/Resolved]
